FAERS Safety Report 9787541 (Version 1)
Quarter: 2013Q4

REPORT INFORMATION
  Report Type: Spontaneous
  Country: US (occurrence: None)
  Receive Date: 20131224
  Receipt Date: 20131224
  Transmission Date: 20140711
  Serious: Yes (Hospitalization)
  Sender: FDA-Public Use
  Company Number: UTC-042125

PATIENT
  Age: 61 Year
  Sex: Female

DRUGS (1)
  1. REMODULIN (1 MILLIGRAM/ MILLILITERS, INJECTION FOR INFUSION) (TREPROSTINIL SODIUM) [Suspect]
     Indication: PULMONARY ARTERIAL HYPERTENSION
     Dosage: 30.24 UG/KG (0.021 UG/KG, 1 IN 1 MIN)
     Route: 041

REACTIONS (4)
  - Dyspnoea [None]
  - Palpitations [None]
  - Wrong technique in drug usage process [None]
  - Incorrect drug administration duration [None]
